FAERS Safety Report 5306037-2 (Version None)
Quarter: 2007Q2

REPORT INFORMATION
  Report Type: 
  Country: None (occurrence: None)
  Receive Date: 20070424
  Receipt Date: 20070413
  Transmission Date: 20071010
  Serious: Yes (Life-Threatening)
  Sender: FDA-Public Use
  Company Number: FR-ROCHE-492873

PATIENT
  Age: 71 Year
  Sex: Female

DRUGS (3)
  1. XELODA [Suspect]
     Indication: RECTAL CANCER
     Route: 048
     Dates: start: 20070202, end: 20070208
  2. ELOXATIN [Concomitant]
     Indication: RECTAL CANCER
     Dosage: AT T.
     Route: 042
     Dates: start: 20061123, end: 20070202
  3. FOLFOX [Concomitant]
     Indication: RECTAL CANCER
     Dosage: FIRST CYCLE 23 NOV 2006, SECOND CYCLE 19 JAN 2007.
     Route: 042
     Dates: start: 20061123

REACTIONS (5)
  - DIARRHOEA [None]
  - HYPOKALAEMIA [None]
  - HYPOPROTEINAEMIA [None]
  - VOMITING [None]
  - WEIGHT DECREASED [None]
